FAERS Safety Report 11792241 (Version 2)
Quarter: 2015Q4

REPORT INFORMATION
  Report Type: Spontaneous
  Country: US (occurrence: US)
  Receive Date: 20151201
  Receipt Date: 20151202
  Transmission Date: 20160305
  Serious: Yes (Other)
  Sender: FDA-Public Use
  Company Number: US-BAYER-2015-474556

PATIENT
  Sex: Female

DRUGS (2)
  1. MIRENA [Suspect]
     Active Substance: LEVONORGESTREL
     Indication: SEIZURE
     Dosage: 20 MCG/24HR, CONT
     Route: 015
     Dates: start: 20151029
  2. ALEVE [Suspect]
     Active Substance: NAPROXEN SODIUM
     Indication: GENITAL HAEMORRHAGE
     Dosage: UNK

REACTIONS (6)
  - Post procedural haemorrhage [None]
  - Seizure [None]
  - Insomnia [None]
  - Off label use of device [None]
  - Haemoglobin decreased [None]
  - Partial seizures [None]

NARRATIVE: CASE EVENT DATE: 2015
